FAERS Safety Report 10018917 (Version 2)
Quarter: 2014Q1

REPORT INFORMATION
  Report Type: Report from Study
  Country: US (occurrence: US)
  Receive Date: 20140318
  Receipt Date: 20140331
  Transmission Date: 20141002
  Serious: Yes (Other)
  Sender: FDA-Public Use
  Company Number: US-ABBVIE-14P-163-1210313-00

PATIENT
  Age: 39 Year
  Sex: Female

DRUGS (5)
  1. HUMIRA [Suspect]
     Indication: CROHN^S DISEASE
     Dosage: MAINTENANCE DOSE
  2. HUMIRA [Suspect]
     Dosage: MAINTENANCE DOSE
     Dates: start: 201301
  3. IMURAN [Concomitant]
     Indication: PRODUCT USED FOR UNKNOWN INDICATION
     Dates: start: 2012
  4. CIPRO [Concomitant]
     Indication: PRODUCT USED FOR UNKNOWN INDICATION
     Dosage: OFF AND ON
  5. FLAGYL [Concomitant]
     Indication: PRODUCT USED FOR UNKNOWN INDICATION
     Dosage: OFF AND ON

REACTIONS (8)
  - Fistula [Recovering/Resolving]
  - Intestinal obstruction [Recovering/Resolving]
  - Fistula [Unknown]
  - Anal dilation procedure [Recovered/Resolved]
  - Cholecystectomy [Recovered/Resolved]
  - Injection site pain [Unknown]
  - Fistula [Unknown]
  - Drug ineffective [Unknown]
